FAERS Safety Report 10145008 (Version 1)
Quarter: 2014Q2

REPORT INFORMATION
  Report Type: Spontaneous
  Country: IN (occurrence: IN)
  Receive Date: 20140501
  Receipt Date: 20140501
  Transmission Date: 20141212
  Serious: Yes (Other)
  Sender: FDA-Public Use
  Company Number: PHHY2014IN049782

PATIENT
  Age: 50 Year
  Sex: Male

DRUGS (3)
  1. METRONIDAZOLE [Suspect]
     Indication: LICHEN PLANUS
     Dosage: 400 MG, BID
     Route: 048
  2. VITAMINS NOS [Concomitant]
     Route: 048
  3. TRIAMCINOLONE [Concomitant]
     Route: 061

REACTIONS (23)
  - Stevens-Johnson syndrome [Recovered/Resolved]
  - Burning sensation [Recovered/Resolved]
  - Pruritus [Recovered/Resolved]
  - Dizziness [Recovered/Resolved]
  - Erythema [Recovered/Resolved]
  - Scrotal ulcer [Recovered/Resolved]
  - Pyrexia [Recovered/Resolved]
  - Lip ulceration [Recovered/Resolved]
  - Mucosal ulceration [Recovered/Resolved]
  - Blister [Recovered/Resolved]
  - Confusional state [Recovered/Resolved]
  - Loss of consciousness [Recovered/Resolved]
  - Chills [Recovered/Resolved]
  - Palpitations [Recovered/Resolved]
  - Pain in extremity [Recovered/Resolved]
  - Dysphagia [Recovered/Resolved]
  - Dysuria [Recovered/Resolved]
  - Urethral discharge [Recovered/Resolved]
  - Hyperglycaemia [Recovered/Resolved]
  - Skin haemorrhage [Recovered/Resolved]
  - Scab [Recovered/Resolved]
  - Pyuria [Recovered/Resolved]
  - Convulsion [Recovered/Resolved]
